FAERS Safety Report 9779409 (Version 1)
Quarter: 2013Q4

REPORT INFORMATION
  Report Type: Spontaneous
  Country: DE (occurrence: DE)
  Receive Date: 20131223
  Receipt Date: 20131223
  Transmission Date: 20140711
  Serious: Yes (Death)
  Sender: FDA-Public Use
  Company Number: DE-MERCK-1312DEU008156

PATIENT
  Age: 75 Year
  Sex: Male

DRUGS (6)
  1. CANCIDAS [Suspect]
     Indication: PNEUMONIA FUNGAL
     Dosage: UNK
     Route: 042
     Dates: start: 20100404
  2. MOXIFLOXACIN HYDROCHLORIDE [Concomitant]
  3. PIPERACILLIN SODIUM (+) SULBACTAM SODIUM [Concomitant]
  4. METOPROLOL [Concomitant]
  5. AMIODARONE [Concomitant]
  6. MORPHINE [Concomitant]

REACTIONS (2)
  - Neutropenic sepsis [Fatal]
  - Pneumonia fungal [Fatal]
